FAERS Safety Report 10151908 (Version 2)
Quarter: 2014Q2

REPORT INFORMATION
  Report Type: Report from Study
  Country: CA (occurrence: CA)
  Receive Date: 20140505
  Receipt Date: 20140505
  Transmission Date: 20141212
  Serious: Yes (Other)
  Sender: FDA-Public Use
  Company Number: CA-JNJFOC-20131107944

PATIENT
  Age: 49 Year
  Sex: Female
  Weight: 74.7 kg

DRUGS (1)
  1. REMICADE [Suspect]
     Indication: COLITIS ULCERATIVE
     Dosage: RECEIVED 32 INFUSIONS
     Route: 042
     Dates: start: 20091027

REACTIONS (2)
  - Thyroid neoplasm [Recovering/Resolving]
  - Solar lentigo [Recovering/Resolving]
